FAERS Safety Report 8265738-7 (Version None)
Quarter: 2012Q2

REPORT INFORMATION
  Report Type: 
  Country: None (occurrence: None)
  Receive Date: 20120406
  Receipt Date: 20120327
  Transmission Date: 20120825
  Serious: Yes (Other)
  Sender: FDA-Public Use
  Company Number: DE-UCBSA-054349

PATIENT
  Age: 55 Year
  Sex: Female

DRUGS (5)
  1. FOLCUR [Concomitant]
     Indication: OSTEOARTHRITIS
  2. CELEBREX [Concomitant]
     Indication: OSTEOARTHRITIS
     Dosage: ON ALTERNATE DAYS
  3. CIMZIA [Suspect]
     Indication: RHEUMATOID ARTHRITIS
     Dosage: FREQUENCY: EVERY 3 WEEKS.
     Route: 058
     Dates: start: 20110901
  4. METHOTREXATE [Concomitant]
     Indication: RHEUMATOID ARTHRITIS
     Dosage: 7.5 MG WEEKLY
     Route: 058
  5. ARAVA [Concomitant]

REACTIONS (5)
  - ANTINUCLEAR ANTIBODY POSITIVE [None]
  - PLATELET COUNT INCREASED [None]
  - CUTANEOUS VASCULITIS [None]
  - ANTINEUTROPHIL CYTOPLASMIC ANTIBODY POSITIVE [None]
  - CARDIAC VALVE VEGETATION [None]
